FAERS Safety Report 20980731 (Version 1)
Quarter: 2022Q2

REPORT INFORMATION
  Report Type: Spontaneous
  Country: CO (occurrence: CO)
  Receive Date: 20220620
  Receipt Date: 20220620
  Transmission Date: 20220721
  Serious: Yes (Other)
  Sender: FDA-Public Use
  Company Number: CO-MLMSERVICE-20220607-3601035-1

PATIENT

DRUGS (8)
  1. ESOMEPRAZOLE [Suspect]
     Active Substance: ESOMEPRAZOLE
     Indication: Gastritis
     Dosage: 1 MILLIGRAM/KILOGRAM, QD
     Route: 065
  2. POLYETHYLENE GLYCOL COMPOUND [Concomitant]
     Indication: Constipation
     Dosage: 1 G/KG, QD
     Route: 065
  3. SODIUM PICOSULFATE [Concomitant]
     Active Substance: SODIUM PICOSULFATE
     Indication: Constipation
     Dosage: 6 MILLIGRAM, QD
     Route: 065
  4. PRUCALOPRIDE [Concomitant]
     Active Substance: PRUCALOPRIDE
     Indication: Impaired gastric emptying
     Dosage: 0.04 MILLIGRAM/KILOGRAM, QD
     Route: 065
  5. PRUCALOPRIDE [Concomitant]
     Active Substance: PRUCALOPRIDE
     Dosage: 0.03 MILLIGRAM/KILOGRAM, QD
     Route: 065
  6. DOMPERIDONE [Concomitant]
     Active Substance: DOMPERIDONE
     Indication: Impaired gastric emptying
     Dosage: 0.9 MG/KG/DAY, TID
     Route: 065
  7. ERYTHROMYCIN [Concomitant]
     Active Substance: ERYTHROMYCIN
     Indication: Impaired gastric emptying
     Dosage: 15 MG/KG/DAY, TID
     Route: 065
  8. METOCLOPRAMIDE [Concomitant]
     Active Substance: METOCLOPRAMIDE
     Indication: Impaired gastric emptying
     Dosage: 0.6 MG/KG/DAY, TID
     Route: 065

REACTIONS (2)
  - Impaired gastric emptying [Recovered/Resolved]
  - Adverse drug reaction [Unknown]
